FAERS Safety Report 8336086-1 (Version None)
Quarter: 2012Q1

REPORT INFORMATION
  Report Type: 
  Country: None (occurrence: None)
  Receive Date: 20120329
  Receipt Date: 20091028
  Transmission Date: 20120608
  Serious: Yes (Life-Threatening)
  Sender: FDA-Public Use
  Company Number: PHEH2009US14593

PATIENT
  Age: 71 Year
  Sex: Male
  Weight: 55.3 kg

DRUGS (2)
  1. EXELON [Suspect]
     Indication: DEMENTIA ALZHEIMER'S TYPE
     Dosage: TRANSDERMAL, 9.5 MG, QD, TRANSDERMAL
     Route: 062
     Dates: start: 20090804, end: 20090824
  2. EXELON [Suspect]
     Indication: DEMENTIA ALZHEIMER'S TYPE
     Dosage: TRANSDERMAL, 9.5 MG, QD, TRANSDERMAL
     Route: 062
     Dates: start: 20080108, end: 20090804

REACTIONS (5)
  - VOMITING [None]
  - DIZZINESS [None]
  - PALLOR [None]
  - HYPOTENSION [None]
  - NAUSEA [None]
